FAERS Safety Report 8858650 (Version 4)
Quarter: 2013Q3

REPORT INFORMATION
  Report Type: Spontaneous
  Country: US (occurrence: US)
  Receive Date: 20121024
  Receipt Date: 20130923
  Transmission Date: 20140515
  Serious: No
  Sender: FDA-Public Use
  Company Number: US-B.I. PHARMACEUTICALS,INC./RIDGEFIELD-2012-BP-26036BP

PATIENT
  Age: 79 Year
  Sex: Female
  Weight: 74.36 kg

DRUGS (23)
  1. PRADAXA [Suspect]
     Indication: ATRIAL FIBRILLATION
     Dosage: 300 MG
     Route: 048
     Dates: start: 201012, end: 20110503
  2. PRADAXA [Suspect]
     Dosage: 300 MG
     Route: 048
     Dates: start: 20110601
  3. PRADAXA [Suspect]
     Dosage: 300 MG
     Route: 048
     Dates: start: 201012
  4. LISINOPRIL [Suspect]
  5. MULTAQ [Suspect]
     Dosage: 800 MG
  6. VITAMIN D [Concomitant]
     Indication: OSTEOPOROSIS
  7. LEVOTHYROXINE [Concomitant]
     Indication: HYPOTHYROIDISM
     Dosage: 5 MCG
     Route: 048
  8. OMEGA 3 [Concomitant]
     Dosage: 1000 MG
     Route: 048
  9. TRAMADOL [Concomitant]
     Indication: ARTHRITIS
     Dosage: 50 MG
     Route: 048
  10. TYLENOL ARTHRITIS [Concomitant]
     Indication: ARTHRITIS
     Dosage: 1300 MG
     Route: 048
  11. CARVEDILOL [Concomitant]
     Indication: HYPERTENSION
     Dosage: 25 MG
     Route: 048
  12. CARVEDILOL [Concomitant]
     Indication: ATRIAL FIBRILLATION
     Dosage: 12.5 MG
     Route: 048
  13. CALCIUM [Concomitant]
     Indication: OSTEOPOROSIS
     Dosage: 600 MG
     Route: 048
  14. ESTRADIOL [Concomitant]
     Indication: HORMONE REPLACEMENT THERAPY
     Dosage: 1 MG
     Route: 048
  15. AMOXICILLIN [Concomitant]
     Indication: DENTAL DISORDER PROPHYLAXIS
     Route: 048
  16. VITAMIN D3 [Concomitant]
     Dosage: 1000 U
     Route: 048
  17. BIOTIN [Concomitant]
     Dosage: 30 MCG
     Route: 048
  18. FOLIC ACID [Concomitant]
     Dosage: 1000 MCG
     Route: 048
  19. GENTEAL EYE DROPS [Concomitant]
     Indication: CATARACT
  20. GENTEAL EYE OINTMENT [Concomitant]
     Indication: CATARACT
  21. MULTIVITAMIN [Concomitant]
  22. ALLERGY SHOTS [Concomitant]
     Indication: SEASONAL ALLERGY
     Dosage: FORMULATION: SUBCUTANEOUS
     Route: 058
  23. ALLERGY SHOTS [Concomitant]
     Indication: HYPERSENSITIVITY

REACTIONS (16)
  - Dry skin [Not Recovered/Not Resolved]
  - Alopecia [Not Recovered/Not Resolved]
  - Dry skin [Not Recovered/Not Resolved]
  - Onychoclasis [Not Recovered/Not Resolved]
  - Alopecia [Not Recovered/Not Resolved]
  - Contusion [Not Recovered/Not Resolved]
  - Sinus headache [Recovered/Resolved]
  - Pyrexia [Recovered/Resolved]
  - Rhinorrhoea [Recovered/Resolved]
  - Swelling face [Unknown]
  - Eyelid oedema [Unknown]
  - Joint swelling [Unknown]
  - Local swelling [Unknown]
  - Fatigue [Unknown]
  - Contusion [Not Recovered/Not Resolved]
  - Alopecia [Not Recovered/Not Resolved]
